FAERS Safety Report 7501694-4 (Version None)
Quarter: 2011Q2

REPORT INFORMATION
  Report Type: 
  Country: None (occurrence: None)
  Receive Date: 20110525
  Receipt Date: 20110517
  Transmission Date: 20111010
  Serious: Yes (Hospitalization, Other)
  Sender: FDA-Public Use
  Company Number: FR-BRISTOL-MYERS SQUIBB COMPANY-15531049

PATIENT
  Age: 58 Year
  Sex: Female
  Weight: 57 kg

DRUGS (4)
  1. CETUXIMAB [Suspect]
     Indication: HEAD AND NECK CANCER
     Dosage: 680MG, 03JAN11-03JAN11 425MG, 10JAN11-17JAN11(7D) 415MG, 24JAN11(RECENT DOSE)-ONG
     Route: 042
     Dates: start: 20110103
  2. CISPLATIN [Suspect]
     Indication: HEAD AND NECK CANCER
     Dosage: 170MG, 03JAN11-03JAN11 166MG, 24JAN11(RECENT DOSE)-ONG
     Route: 042
     Dates: start: 20110103
  3. FLUOROURACIL [Suspect]
     Indication: HEAD AND NECK CANCER
     Dosage: 6800MG 03JAN11-06JAN11(3D) 6600MG 24JAN11(RECENT DOSE)-ONG
     Route: 042
     Dates: start: 20110103
  4. INSULATARD [Concomitant]
     Indication: DIABETES MELLITUS
     Dosage: AGAIN 10 IU 1 IN 1 DAY
     Route: 058
     Dates: start: 20110128

REACTIONS (6)
  - RENAL FAILURE [None]
  - VOMITING [None]
  - ASTHENIA [None]
  - DEHYDRATION [None]
  - WEIGHT DECREASED [None]
  - NAUSEA [None]
